FAERS Safety Report 20992800 (Version 1)
Quarter: 2022Q2

REPORT INFORMATION
  Report Type: Spontaneous
  Country: US (occurrence: US)
  Receive Date: 20220622
  Receipt Date: 20220622
  Transmission Date: 20220720
  Serious: Yes (Hospitalization, Other)
  Sender: FDA-Public Use
  Company Number: US-GLAXOSMITHKLINE-US2019GSK177546

PATIENT

DRUGS (2)
  1. BENLYSTA [Suspect]
     Active Substance: BELIMUMAB
     Indication: Systemic lupus erythematosus
     Dosage: UNK
     Dates: start: 20150424, end: 20160921
  2. METHOTREXATE [Concomitant]
     Active Substance: METHOTREXATE
     Indication: Systemic lupus erythematosus
     Dosage: UNK
     Dates: start: 20150414

REACTIONS (2)
  - Subarachnoid haemorrhage [Recovered/Resolved with Sequelae]
  - Intracranial aneurysm [Recovered/Resolved with Sequelae]

NARRATIVE: CASE EVENT DATE: 20190908
